FAERS Safety Report 7234508-0 (Version None)
Quarter: 2011Q1

REPORT INFORMATION
  Report Type: 
  Country: None (occurrence: None)
  Receive Date: 20110119
  Receipt Date: 20110113
  Transmission Date: 20110831
  Serious: Yes (Other)
  Sender: FDA-Public Use
  Company Number: AU-MERCK-1010USA02175

PATIENT
  Age: 82 Year
  Sex: Female

DRUGS (2)
  1. GLUCOSAMINE [Suspect]
     Route: 065
  2. FOSAMAX [Suspect]
     Route: 048

REACTIONS (2)
  - FEMUR FRACTURE [None]
  - CHONDROPATHY [None]
